FAERS Safety Report 5430963-7 (Version None)
Quarter: 2007Q3

REPORT INFORMATION
  Report Type: 
  Country: None (occurrence: None)
  Receive Date: 20070830
  Receipt Date: 20070821
  Transmission Date: 20080115
  Serious: Yes (Other)
  Sender: FDA-Public Use
  Company Number: A0668780A

PATIENT
  Sex: Female

DRUGS (11)
  1. AVANDIA [Suspect]
     Indication: DRUG USE FOR UNKNOWN INDICATION
     Route: 048
  2. METFORMIN HCL [Concomitant]
  3. LIPITOR [Concomitant]
  4. NPH INSULIN [Concomitant]
  5. SYNTHROID [Concomitant]
  6. ZETIA [Concomitant]
  7. AVAPRO [Concomitant]
  8. GLUCOPHAGE [Concomitant]
  9. GLIPIZIDE [Concomitant]
  10. BYETTA [Concomitant]
  11. EVISTA [Concomitant]

REACTIONS (5)
  - BLINDNESS [None]
  - DIABETES MELLITUS INADEQUATE CONTROL [None]
  - MACULAR OEDEMA [None]
  - MALAISE [None]
  - RETINAL DISORDER [None]
